FAERS Safety Report 8118346-2 (Version None)
Quarter: 2012Q1

REPORT INFORMATION
  Report Type: 
  Country: None (occurrence: None)
  Receive Date: 20120207
  Receipt Date: 20120202
  Transmission Date: 20120608
  Serious: Yes (Death, Hospitalization, Other)
  Sender: FDA-Public Use
  Company Number: IN-PFIZER INC-2012029751

PATIENT
  Sex: Female

DRUGS (1)
  1. SUTENT [Suspect]
     Indication: METASTATIC RENAL CELL CARCINOMA
     Dosage: 25 MG, 1X/DAY
     Route: 048
     Dates: start: 20120104, end: 20120124

REACTIONS (11)
  - DIARRHOEA [None]
  - ANAEMIA [None]
  - METASTATIC RENAL CELL CARCINOMA [None]
  - DISEASE PROGRESSION [None]
  - BRADYCARDIA [None]
  - PULMONARY OEDEMA [None]
  - VOMITING [None]
  - NAUSEA [None]
  - DYSPNOEA [None]
  - RENAL FAILURE [None]
  - BLOOD PRESSURE DECREASED [None]
